FAERS Safety Report 10072322 (Version 1)
Quarter: 2014Q2

REPORT INFORMATION
  Report Type: Spontaneous
  Country: FR (occurrence: FR)
  Receive Date: 20140411
  Receipt Date: 20140411
  Transmission Date: 20141212
  Serious: Yes (Death, Hospitalization)
  Sender: FDA-Public Use
  Company Number: FR-BRISTOL-MYERS SQUIBB COMPANY-20605390

PATIENT
  Age: 85 Year
  Sex: Male

DRUGS (2)
  1. COUMADINE [Suspect]
     Indication: PULMONARY EMBOLISM
     Route: 048
  2. COUMADINE [Suspect]
     Indication: EMBOLISM VENOUS
     Route: 048

REACTIONS (3)
  - Cerebral haemorrhage [Fatal]
  - Respiratory distress [Unknown]
  - Pneumonia aspiration [Unknown]
